FAERS Safety Report 25038636 (Version 1)
Quarter: 2025Q1

REPORT INFORMATION
  Report Type: Spontaneous
  Country: JP (occurrence: JP)
  Receive Date: 20250304
  Receipt Date: 20250304
  Transmission Date: 20250408
  Serious: Yes (Death, Other)
  Sender: NOVO NORDISK
  Company Number: JP-NOVOPROD-1379210

PATIENT
  Age: 4 Year

DRUGS (1)
  1. NORDITROPIN [Suspect]
     Active Substance: SOMATROPIN
     Indication: Turner^s syndrome

REACTIONS (3)
  - Neuroblastoma [Fatal]
  - Metastases to bone marrow [Fatal]
  - Metastases to spinal cord [Fatal]
